FAERS Safety Report 5416143-X (Version None)
Quarter: 2007Q3

REPORT INFORMATION
  Report Type: 
  Country: None (occurrence: None)
  Receive Date: 20070718
  Receipt Date: 20070315
  Transmission Date: 20080115
  Serious: Yes (Other)
  Sender: FDA-Public Use
  Company Number: 2007021087

PATIENT
  Age: 46 Year
  Sex: Female
  Weight: 79.4 kg

DRUGS (8)
  1. CELEBREX [Suspect]
     Indication: INTERVERTEBRAL DISC PROTRUSION
     Dosage: 100 MG (100 MG,1 IN 1 D); 200 MG (200 MG,1 IN 1 D)
     Dates: start: 19990101
  2. CELEBREX [Suspect]
     Indication: RHEUMATOID ARTHRITIS
     Dosage: 100 MG (100 MG,1 IN 1 D); 200 MG (200 MG,1 IN 1 D)
     Dates: start: 19990101
  3. CELEBREX [Suspect]
     Indication: INTERVERTEBRAL DISC PROTRUSION
     Dosage: 100 MG (100 MG,1 IN 1 D); 200 MG (200 MG,1 IN 1 D)
     Dates: start: 19990101
  4. CELEBREX [Suspect]
     Indication: RHEUMATOID ARTHRITIS
     Dosage: 100 MG (100 MG,1 IN 1 D); 200 MG (200 MG,1 IN 1 D)
     Dates: start: 19990101
  5. BEXTRA [Suspect]
     Indication: INTERVERTEBRAL DISC PROTRUSION
     Dosage: 10 MG (10 MG,1 IN 1 D); 20 MG (20 MG,1 IN 1D)
     Dates: start: 20030101
  6. BEXTRA [Suspect]
     Indication: RHEUMATOID ARTHRITIS
     Dosage: 10 MG (10 MG,1 IN 1 D); 20 MG (20 MG,1 IN 1D)
     Dates: start: 20030101
  7. BEXTRA [Suspect]
     Indication: INTERVERTEBRAL DISC PROTRUSION
     Dosage: 10 MG (10 MG,1 IN 1 D); 20 MG (20 MG,1 IN 1D)
     Dates: start: 20030101
  8. BEXTRA [Suspect]
     Indication: RHEUMATOID ARTHRITIS
     Dosage: 10 MG (10 MG,1 IN 1 D); 20 MG (20 MG,1 IN 1D)
     Dates: start: 20030101

REACTIONS (13)
  - ABDOMINAL PAIN UPPER [None]
  - ANAEMIA [None]
  - ANXIETY [None]
  - DEPRESSION [None]
  - HEADACHE [None]
  - LIP SWELLING [None]
  - NASAL POLYPS [None]
  - PAIN [None]
  - RECTAL HAEMORRHAGE [None]
  - RECTAL ULCER [None]
  - SOCIAL PHOBIA [None]
  - STOMATITIS [None]
  - WEIGHT INCREASED [None]
